FAERS Safety Report 7940128-2 (Version None)
Quarter: 2011Q4

REPORT INFORMATION
  Report Type: 
  Country: None (occurrence: None)
  Receive Date: 20111125
  Receipt Date: 20111114
  Transmission Date: 20120403
  Serious: Yes (Other)
  Sender: FDA-Public Use
  Company Number: US-ELI_LILLY_AND_COMPANY-US201111005960

PATIENT
  Sex: Female

DRUGS (7)
  1. FISH OIL [Concomitant]
  2. FORTEO [Suspect]
     Indication: OSTEOPOROSIS
     Dosage: 20 UG, QD
     Route: 065
     Dates: start: 20100101
  3. VYTORIN [Concomitant]
  4. SYNTHROID [Concomitant]
  5. LISINOPRIL [Concomitant]
  6. CALCIUM W/VITAMIN D NOS [Concomitant]
  7. MAGNESIUM SULFATE [Concomitant]

REACTIONS (4)
  - SKIN LESION EXCISION [None]
  - INJECTION SITE HAEMATOMA [None]
  - CHEMOTHERAPY [None]
  - DRUG PRESCRIBING ERROR [None]
